FAERS Safety Report 11077321 (Version 3)
Quarter: 2015Q3

REPORT INFORMATION
  Report Type: Report from Study
  Country: JP (occurrence: JP)
  Receive Date: 20150429
  Receipt Date: 20150908
  Transmission Date: 20151125
  Serious: Yes (Other)
  Sender: FDA-Public Use
  Company Number: JP-009507513-1504JPN022898

PATIENT

DRUGS (5)
  1. INTRON A [Suspect]
     Active Substance: INTERFERON ALFA-2B
     Indication: HEPATITIS C
     Dosage: 6 MU WAS GIVEN ONCE DAILY FOR 2 WEEKS
     Route: 051
  2. REBETOL [Suspect]
     Active Substance: RIBAVIRIN
     Indication: HEPATITIS C
     Dosage: WAS GIVEN ORALLY ON THE BASIS OF WEIGHT
     Route: 048
  3. PEGINTRON [Suspect]
     Active Substance: PEGINTERFERON ALFA-2B
     Indication: HEPATITIS C
     Dosage: 1.5 MICROGRAM/KG, SUBCUTANEOUSLY ONCE A WEEK
     Route: 058
  4. PEGINTRON [Suspect]
     Active Substance: PEGINTERFERON ALFA-2B
     Dosage: 24-72 WEEKS
     Route: 048
  5. INTRON A [Suspect]
     Active Substance: INTERFERON ALFA-2B
     Dosage: 6 MILLION IU, TIW FOR 22 WEEKS.
     Route: 051

REACTIONS (1)
  - Hepatic failure [Unknown]
